FAERS Safety Report 7904524-1 (Version None)
Quarter: 2011Q4

REPORT INFORMATION
  Report Type: 
  Country: None (occurrence: None)
  Receive Date: 20111109
  Receipt Date: 20111028
  Transmission Date: 20120403
  Serious: Yes (Hospitalization)
  Sender: FDA-Public Use
  Company Number: US-BAYER-2011-034585

PATIENT
  Age: 43 Year
  Sex: Female
  Weight: 175.6 kg

DRUGS (9)
  1. HYDROCHLOROTHIAZIDE [Concomitant]
     Dosage: UNK
     Dates: start: 20010101
  2. YASMIN [Suspect]
     Indication: CONTRACEPTION
     Dosage: UNK
     Dates: start: 20070219, end: 20070409
  3. MAXZIDE [Concomitant]
  4. ROBITUSSIN [DEXTROMET HBR,GUAIF,PSEUDOEPH HCL] [Concomitant]
     Dosage: UNK
     Dates: start: 20070301
  5. CEFTIN [Concomitant]
     Dosage: UNK
     Dates: start: 20070301
  6. ALTACE [Concomitant]
     Dosage: UNK
     Dates: start: 20050101, end: 20070101
  7. LIPITOR [Concomitant]
     Dosage: UNK
     Dates: start: 20060101, end: 20070101
  8. TRIAMTERENE [Concomitant]
     Indication: DIURETIC THERAPY
     Dosage: 37.5 MG, QD
     Dates: start: 20050101
  9. DIURETICS [Concomitant]
     Dosage: UNK
     Dates: start: 20010101

REACTIONS (4)
  - PAIN [None]
  - FEAR [None]
  - ANXIETY [None]
  - PULMONARY EMBOLISM [None]
